FAERS Safety Report 21020373 (Version 1)
Quarter: 2022Q2

REPORT INFORMATION
  Report Type: Spontaneous
  Country: CA (occurrence: CA)
  Receive Date: 20220629
  Receipt Date: 20220629
  Transmission Date: 20220720
  Serious: Yes (Other)
  Sender: FDA-Public Use
  Company Number: CA-ABBVIE-22K-028-4448441-00

PATIENT
  Age: 31 Year
  Sex: Female

DRUGS (4)
  1. HUMIRA [Suspect]
     Active Substance: ADALIMUMAB
     Indication: Product used for unknown indication
     Route: 058
     Dates: end: 202205
  2. CODEINE [Suspect]
     Active Substance: CODEINE
     Indication: Product used for unknown indication
     Route: 065
  3. MESALAMINE [Suspect]
     Active Substance: MESALAMINE
     Indication: Product used for unknown indication
     Dosage: 500 MG TABLET
     Route: 065
  4. ABRILADA [Concomitant]
     Active Substance: ADALIMUMAB-AFZB
     Indication: Colitis ulcerative
     Route: 058
     Dates: start: 20220528

REACTIONS (12)
  - Drug intolerance [Unknown]
  - Drug intolerance [Unknown]
  - Skin discomfort [Not Recovered/Not Resolved]
  - Skin disorder [Not Recovered/Not Resolved]
  - Drug hypersensitivity [Unknown]
  - Drug hypersensitivity [Unknown]
  - Cellulitis [Not Recovered/Not Resolved]
  - Rash [Not Recovered/Not Resolved]
  - Blood urine present [Unknown]
  - Influenza [Unknown]
  - Arthralgia [Unknown]
  - Blood urine present [Unknown]

NARRATIVE: CASE EVENT DATE: 20220101
